FAERS Safety Report 7545669-8 (Version None)
Quarter: 2011Q2

REPORT INFORMATION
  Report Type: 
  Country: None (occurrence: None)
  Receive Date: 20110524
  Receipt Date: 20110407
  Transmission Date: 20111010
  Serious: No
  Sender: FDA-Public Use
  Company Number: 027434

PATIENT
  Sex: Female

DRUGS (3)
  1. CIMZIA [Suspect]
     Indication: CROHN'S DISEASE
     Dosage: (400 MG 1X/MONTH SUBCUTANEOUS) ; (400 MG 1X/28 DAYS SUBCUTANEOUS) ; (400 MG 1X/MONTH SUBCUTANEOUS)
     Route: 058
     Dates: start: 20091118
  2. CIMZIA [Suspect]
  3. CIMZIA [Suspect]

REACTIONS (4)
  - INJECTION SITE PAIN [None]
  - CROHN'S DISEASE [None]
  - PRURITUS [None]
  - BLOOD PRESSURE INCREASED [None]
